FAERS Safety Report 22378432 (Version 1)
Quarter: 2023Q2

REPORT INFORMATION
  Report Type: Spontaneous
  Country: CZ (occurrence: CZ)
  Receive Date: 20230529
  Receipt Date: 20230529
  Transmission Date: 20230721
  Serious: Yes (Death, Hospitalization, Other)
  Sender: FDA-Public Use
  Company Number: CZ-AMGEN-CZESP2023090027

PATIENT
  Age: 64 Year
  Sex: Male

DRUGS (4)
  1. PANITUMUMAB [Suspect]
     Active Substance: PANITUMUMAB
     Indication: Colorectal cancer metastatic
     Dosage: UNK
     Route: 065
     Dates: start: 201902, end: 201910
  2. PANITUMUMAB [Suspect]
     Active Substance: PANITUMUMAB
     Dosage: UNK
     Route: 065
     Dates: start: 202001, end: 202103
  3. BEVACIZUMAB [Suspect]
     Active Substance: BEVACIZUMAB
     Indication: Colorectal cancer metastatic
     Dosage: UNK
     Route: 065
     Dates: start: 202103, end: 202210
  4. IRINOTECAN [Suspect]
     Active Substance: IRINOTECAN
     Indication: Colorectal cancer metastatic
     Dosage: UNK
     Route: 065
     Dates: start: 201902, end: 201910

REACTIONS (13)
  - Death [Fatal]
  - Colorectal cancer metastatic [Unknown]
  - Chronic hepatitis B [Unknown]
  - Liver disorder [Unknown]
  - Hypokalaemia [Recovering/Resolving]
  - Rash [Unknown]
  - Hypomagnesaemia [Recovering/Resolving]
  - Fatigue [Unknown]
  - Blood pressure increased [Unknown]
  - Weight decreased [Unknown]
  - Asthenia [Unknown]
  - Lymphadenopathy [Unknown]
  - Off label use [Unknown]

NARRATIVE: CASE EVENT DATE: 20190101
